FAERS Safety Report 5377537-4 (Version None)
Quarter: 2007Q3

REPORT INFORMATION
  Report Type: 
  Country: None (occurrence: None)
  Receive Date: 20070703
  Receipt Date: 20070703
  Transmission Date: 20080115
  Serious: Yes (Other)
  Sender: FDA-Public Use
  Company Number: A0661172A

PATIENT
  Age: 45 Year
  Sex: Male

DRUGS (2)
  1. COMMIT [Suspect]
     Indication: SMOKING CESSATION THERAPY
     Dosage: 2MG SEE DOSAGE TEXT
     Route: 002
  2. NO CONCURRENT MEDICATION [Concomitant]

REACTIONS (2)
  - DEPENDENCE [None]
  - OVERDOSE [None]
